FAERS Safety Report 19375497 (Version 1)
Quarter: 2021Q2

REPORT INFORMATION
  Report Type: Report from Study
  Country: CA (occurrence: CA)
  Receive Date: 20210604
  Receipt Date: 20210604
  Transmission Date: 20210717
  Serious: Yes (Other)
  Sender: FDA-Public Use
  Company Number: CA-PFIZER INC-2021613337

PATIENT
  Age: 74 Year
  Sex: Male
  Weight: 76.8 kg

DRUGS (8)
  1. MEKTOVI [Suspect]
     Active Substance: BINIMETINIB
     Indication: METASTATIC MALIGNANT MELANOMA
     Dosage: 45 MG, 2X/DAY
     Route: 048
     Dates: start: 20200715
  2. PERINDOPRIL ERBUMINE. [Concomitant]
     Active Substance: PERINDOPRIL ERBUMINE
     Indication: HYPERTENSION
     Dosage: 2 MG, DAILY
     Route: 048
  3. APO?PREDNISONE [Concomitant]
     Active Substance: PREDNISONE
     Indication: RASH
     Dosage: 15 MG, DAILY
     Route: 048
     Dates: start: 20200728, end: 20200810
  4. CLOBETASOL [CLOBETASOL PROPIONATE] [Concomitant]
     Indication: RASH
     Dosage: 0.05 %, LOTION, TARO?CLOBETASOL TOPICAL SOLUTION
     Route: 061
     Dates: start: 20200710
  5. BRAFTOVI [Suspect]
     Active Substance: ENCORAFENIB
     Indication: METASTATIC MALIGNANT MELANOMA
     Dosage: 450 MG, DAILY
     Route: 048
     Dates: start: 20200715
  6. TRAZODONE [Concomitant]
     Active Substance: TRAZODONE HYDROCHLORIDE
     Indication: INSOMNIA
     Dosage: 50 MG, EVERY EVENING
     Route: 048
  7. MEKTOVI [Suspect]
     Active Substance: BINIMETINIB
     Dosage: 45 MG, 2X/DAY
     Route: 048
     Dates: start: 20210120
  8. TAMSULOSIN CR [Concomitant]
     Active Substance: TAMSULOSIN
     Indication: BENIGN PROSTATIC HYPERPLASIA
     Dosage: 0.4 MG, DAILY
     Route: 048

REACTIONS (3)
  - Pyrexia [Recovered/Resolved]
  - Hepatitis [Recovered/Resolved]
  - Rash [Recovered/Resolved]

NARRATIVE: CASE EVENT DATE: 20200801
